FAERS Safety Report 8911329 (Version 1)
Quarter: 2012Q4

REPORT INFORMATION
  Report Type: 
  Country: US (occurrence: US)
  Receive Date: 20121116
  Receipt Date: 20121116
  Transmission Date: 20130627
  Serious: Yes (Life-Threatening, Hospitalization, Other)
  Sender: FDA-Public Use
  Company Number: US-GLAXOSMITHKLINE-A0997513A

PATIENT
  Age: 64 Year
  Sex: Female

DRUGS (5)
  1. VOTRIENT [Suspect]
     Indication: OVARIAN CANCER
     Dosage: 800MG Per day
     Route: 048
     Dates: start: 20120908, end: 20121009
  2. METOPROLOL SUCCINATE [Concomitant]
  3. FUROSEMIDE [Concomitant]
  4. HYDROMORPHONE [Concomitant]
  5. KLOR-CON [Concomitant]

REACTIONS (3)
  - Pneumothorax [Recovered/Resolved]
  - Dyspnoea [Recovered/Resolved]
  - Fatigue [Recovered/Resolved]
